FAERS Safety Report 9913333 (Version 1)
Quarter: 2014Q1

REPORT INFORMATION
  Report Type: Spontaneous
  Country: US (occurrence: None)
  Receive Date: 20140218
  Receipt Date: 20140218
  Transmission Date: 20141002
  Serious: Yes (Other)
  Sender: FDA-Public Use
  Company Number: None

PATIENT
  Age: 48 Year
  Sex: Male
  Weight: 154 kg

DRUGS (7)
  1. SAMSCA [Suspect]
     Dosage: 2 TABLETS Q 4 H
     Route: 048
     Dates: start: 20140123, end: 20140203
  2. ASA [Concomitant]
  3. CLOPIDOGREL [Concomitant]
  4. INSULIN DETEMIR [Concomitant]
  5. INSULIN LISPRO [Concomitant]
  6. LACTULOSE [Concomitant]
  7. PANTOPRAZOLE [Concomitant]

REACTIONS (5)
  - Hyponatraemia [None]
  - Hyperkalaemia [None]
  - Drug administration error [None]
  - Aspartate aminotransferase increased [None]
  - Alanine aminotransferase increased [None]
